FAERS Safety Report 16388141 (Version 1)
Quarter: 2019Q2

REPORT INFORMATION
  Report Type: Report from Study
  Country: US (occurrence: US)
  Receive Date: 20190604
  Receipt Date: 20190604
  Transmission Date: 20190711
  Serious: Yes (Other)
  Sender: FDA-Public Use
  Company Number: US-ROCHE-2327615

PATIENT
  Age: 58 Year
  Sex: Female
  Weight: 61.29 kg

DRUGS (19)
  1. GABAPENTIN. [Concomitant]
     Active Substance: GABAPENTIN
     Indication: NEURALGIA
     Route: 048
  2. DIGESTIVE ADVANTAGE [BACILLUS COAGULANS] [Concomitant]
     Indication: IRRITABLE BOWEL SYNDROME
     Dosage: 2 PILLS ;ONGOING: YES
     Route: 048
  3. TYLENOL [Concomitant]
     Active Substance: ACETAMINOPHEN
     Indication: ARTHRITIS
     Route: 044
  4. ZANAFLEX [Concomitant]
     Active Substance: TIZANIDINE HYDROCHLORIDE
     Indication: MUSCLE SPASMS
     Route: 048
  5. LEVSIN [Concomitant]
     Active Substance: HYOSCYAMINE SULFATE
     Dosage: PRN
     Route: 060
  6. AZELASTINE HCL [Concomitant]
     Active Substance: AZELASTINE HYDROCHLORIDE
     Route: 055
  7. OCREVUS [Suspect]
     Active Substance: OCRELIZUMAB
     Indication: PRIMARY PROGRESSIVE MULTIPLE SCLEROSIS
     Dosage: ONGOING:YES
     Route: 042
     Dates: start: 201811
  8. BENADRYL [Concomitant]
     Active Substance: DIPHENHYDRAMINE HYDROCHLORIDE
     Indication: PRURITUS
     Dosage: PRN
     Route: 048
  9. CENTRUM [MINERALS NOS;VITAMINS NOS] [Concomitant]
     Route: 048
  10. ASPERCREME WITH LIDOCAINE [Concomitant]
     Active Substance: LIDOCAINE
     Dosage: PRN ;ONGOING: YES
     Route: 061
  11. ESTRADIOL. [Concomitant]
     Active Substance: ESTRADIOL
     Dosage: INTRAVAGINAL ;ONGOING: YES
     Route: 065
  12. LYSINE [Concomitant]
     Active Substance: LYSINE
     Route: 060
  13. AZO CRANBERRY [Concomitant]
     Active Substance: DIETARY SUPPLEMENT
     Dosage: 2TABLETS ;ONGOING: YES
     Route: 048
  14. CYMBALTA [Concomitant]
     Active Substance: DULOXETINE HYDROCHLORIDE
     Route: 048
  15. OCREVUS [Suspect]
     Active Substance: OCRELIZUMAB
     Dosage: ONGOING:YES
     Route: 042
     Dates: start: 201812
  16. BENEFIBER [DEXTRIN] [Concomitant]
     Dosage: 1 TBSP ;ONGOING: YES
     Route: 048
  17. ASPIRIN [ACETYLSALICYLIC ACID] [Concomitant]
     Active Substance: ASPIRIN
     Route: 048
  18. PEPPERMINT OIL [Concomitant]
     Active Substance: PEPPERMINT OIL
     Indication: IRRITABLE BOWEL SYNDROME
     Route: 048
  19. BENTYL [Concomitant]
     Active Substance: DICYCLOMINE HYDROCHLORIDE
     Indication: IRRITABLE BOWEL SYNDROME
     Dosage: HS
     Route: 048

REACTIONS (6)
  - Memory impairment [Not Recovered/Not Resolved]
  - Back pain [Recovered/Resolved]
  - Fatigue [Not Recovered/Not Resolved]
  - Nausea [Recovered/Resolved]
  - Herpes virus infection [Recovered/Resolved]
  - Tooth fracture [Not Recovered/Not Resolved]

NARRATIVE: CASE EVENT DATE: 201812
